FAERS Safety Report 16284813 (Version 1)
Quarter: 2019Q2

REPORT INFORMATION
  Report Type: Report from Study
  Country: TR (occurrence: TR)
  Receive Date: 20190508
  Receipt Date: 20190508
  Transmission Date: 20190711
  Serious: Yes (Hospitalization)
  Sender: FDA-Public Use
  Company Number: TR-ROCHE-2215821

PATIENT
  Age: 66 Year
  Sex: Female
  Weight: 75 kg

DRUGS (31)
  1. METOPROLOL SUCCINATE. [Concomitant]
     Active Substance: METOPROLOL SUCCINATE
     Indication: FEMALE GENITAL TRACT FISTULA
     Route: 065
     Dates: start: 20181114, end: 20181120
  2. PANTOPRAZOL [PANTOPRAZOLE] [Concomitant]
     Active Substance: PANTOPRAZOLE
     Route: 065
     Dates: start: 20181016, end: 20181016
  3. INSULIN DETEMIR [Concomitant]
     Active Substance: INSULIN DETEMIR
     Indication: FEMALE GENITAL TRACT FISTULA
  4. RANITIDIN [Concomitant]
     Active Substance: RANITIDINE HYDROCHLORIDE
     Indication: PREMEDICATION
     Route: 065
     Dates: start: 20181017, end: 20181017
  5. PALONOSETRON HCL [Concomitant]
     Active Substance: PALONOSETRON HYDROCHLORIDE
     Indication: PREMEDICATION
     Route: 065
     Dates: start: 20181017, end: 20181017
  6. FENIRAMIN [Concomitant]
     Route: 065
     Dates: start: 20181114, end: 20181120
  7. MAGNESIUM SULPHATE [MAGNESIUM SULFATE] [Concomitant]
     Indication: HYPOMAGNESAEMIA
     Route: 065
     Dates: start: 20181128, end: 20181128
  8. BEVACIZUMAB. [Suspect]
     Active Substance: BEVACIZUMAB
     Indication: OVARIAN CANCER
     Dosage: DATE OF MOST RECENT DOSE 1140 MG OF BEVACEZUMAB PRIOR TO AE AND SAE ONSET 07/NOV/2018.
     Route: 042
     Dates: start: 20180817
  9. INSULIN DETEMIR [Concomitant]
     Active Substance: INSULIN DETEMIR
     Indication: DIABETES MELLITUS
     Route: 065
     Dates: start: 20181114, end: 20181120
  10. METOPROLOL SUCCINATE. [Concomitant]
     Active Substance: METOPROLOL SUCCINATE
     Indication: HYPERTENSION
     Route: 065
  11. POTASSIUM CITRATE. [Concomitant]
     Active Substance: POTASSIUM CITRATE
     Indication: HYPOKALAEMIA
     Route: 065
     Dates: start: 20180826
  12. FENIRAMIN [Concomitant]
     Indication: PREMEDICATION
     Route: 065
     Dates: start: 20181017, end: 20181017
  13. PANTOPRAZOL [PANTOPRAZOLE] [Concomitant]
     Active Substance: PANTOPRAZOLE
     Route: 065
     Dates: start: 20181107, end: 20181107
  14. MAGNESIUM SULPHATE [MAGNESIUM SULFATE] [Concomitant]
     Route: 065
     Dates: start: 20190110, end: 20190110
  15. ERYTHROCYTES [Concomitant]
     Active Substance: HUMAN RED BLOOD CELL
     Indication: ANAEMIA
     Route: 065
     Dates: start: 20181128, end: 20181128
  16. BLINDED ATEZOLIZUMAB [Suspect]
     Active Substance: ATEZOLIZUMAB
     Indication: OVARIAN CANCER
     Dosage: DATE OF MOST RECENT DOSE OF BLINDED ATEZOLIZUMAB PRIOR TO AE AND SAE ONSET 07/NOV/2018.
     Route: 042
     Dates: start: 20180731
  17. PACLITAXEL. [Suspect]
     Active Substance: PACLITAXEL
     Indication: OVARIAN CANCER
     Dosage: DATE OF MOST RECENT DOSE 350 MG OF PACLITAXEL PRIOR TO AE AND SAE ONSATE 07/NOV/2018.
     Route: 042
     Dates: start: 20180731
  18. CAPTOPRIL. [Concomitant]
     Active Substance: CAPTOPRIL
     Indication: HYPERTENSION
     Route: 065
  19. PALONOSETRON HCL [Concomitant]
     Active Substance: PALONOSETRON HYDROCHLORIDE
     Route: 065
     Dates: start: 20181108, end: 20181108
  20. FENIRAMIN [Concomitant]
     Indication: FEMALE GENITAL TRACT FISTULA
     Route: 065
     Dates: start: 20181108, end: 20181108
  21. IRBESARTAN. [Concomitant]
     Active Substance: IRBESARTAN
     Indication: HYPERTENSION
     Route: 065
  22. RANITIDIN [Concomitant]
     Active Substance: RANITIDINE HYDROCHLORIDE
     Route: 065
     Dates: start: 20181108, end: 20181108
  23. MAGNESIUM SULPHATE [MAGNESIUM SULFATE] [Concomitant]
     Route: 065
     Dates: start: 20181219, end: 20181219
  24. INSULIN ASPART [Concomitant]
     Active Substance: INSULIN ASPART
     Indication: DIABETES MELLITUS
     Route: 065
  25. METHIMAZOLE. [Concomitant]
     Active Substance: METHIMAZOLE
     Indication: HYPERTHYROIDISM
     Route: 065
     Dates: start: 20180927
  26. MAGNESIUM SULPHATE [MAGNESIUM SULFATE] [Concomitant]
     Route: 065
     Dates: start: 20190403, end: 20190403
  27. CARBOPLATIN. [Suspect]
     Active Substance: CARBOPLATIN
     Indication: OVARIAN CANCER
     Dosage: DATE OF MOST RECENT DOSE 500 MG PRIOR TO AE AND  SAE ONSET 07/ NOV/2018.
     Route: 042
     Dates: start: 20180731
  28. POTASSIUM CARBONATE [Concomitant]
     Active Substance: POTASSIUM CARBONATE
     Indication: HYPOKALAEMIA
     Route: 065
     Dates: start: 20180826
  29. MAGNESIUM SULPHATE [MAGNESIUM SULFATE] [Concomitant]
     Indication: HYPOMAGNESAEMIA
     Route: 065
     Dates: start: 20181016, end: 20181016
  30. DEXAMETHASONE. [Concomitant]
     Active Substance: DEXAMETHASONE
     Indication: PREMEDICATION
     Route: 042
     Dates: start: 20181017, end: 20181017
  31. DEXAMETHASONE. [Concomitant]
     Active Substance: DEXAMETHASONE
     Indication: FEMALE GENITAL TRACT FISTULA
     Route: 042
     Dates: start: 20181114, end: 20181120

REACTIONS (1)
  - Female genital tract fistula [Recovered/Resolved]

NARRATIVE: CASE EVENT DATE: 20181113
